FAERS Safety Report 10974263 (Version 1)
Quarter: 2015Q2

REPORT INFORMATION
  Report Type: Report from Study
  Country: US (occurrence: US)
  Receive Date: 20150401
  Receipt Date: 20150401
  Transmission Date: 20150821
  Serious: Yes (Hospitalization, Other)
  Sender: FDA-Public Use
  Company Number: US-GLAXOSMITHKLINE-US2015040233

PATIENT

DRUGS (12)
  1. CYMBALTA [Suspect]
     Active Substance: DULOXETINE HYDROCHLORIDE
     Indication: PRODUCT USED FOR UNKNOWN INDICATION
     Dosage: 30 MG, 2X/DAY (BID)
     Route: 048
  2. CETIRIZINE HYDROCHLORIDE. [Suspect]
     Active Substance: CETIRIZINE HYDROCHLORIDE
     Dosage: 10 MG, ONCE DAILY (QD) (CAPSULE)
     Route: 048
  3. VALPROATE SEMISODIUM [Suspect]
     Active Substance: DIVALPROEX SODIUM
     Indication: PRODUCT USED FOR UNKNOWN INDICATION
     Dosage: 1000 MG, 2X/DAY (BID) ((TABLET, ORAL) (500 MG TABLET EXTENDED RELEASE 24 HOUR) 2 TABLET TWICE A DAY)
     Route: 048
  4. SALBUTAMOL SULFATE [Suspect]
     Active Substance: ALBUTEROL SULFATE
     Indication: PRODUCT USED FOR UNKNOWN INDICATION
     Dosage: DOSAGE FORM: INHALATION, INHALE TWO PUFFS IN MOUTH EVERY SIX HOURS AS NEEDED
     Route: 048
  5. ELMIRON [Suspect]
     Active Substance: PENTOSAN POLYSULFATE SODIUM
     Indication: PRODUCT USED FOR UNKNOWN INDICATION
     Dosage: 100 MG 3X/DAY (TID) (1 HOUR BEFORE MEAL OR 2 HOURS AFTER A MEAL)
     Route: 048
  6. VICODIN [Suspect]
     Active Substance: ACETAMINOPHEN\HYDROCODONE BITARTRATE
     Indication: PAIN
     Dosage: (5-325 MG TABLET) TAKE 1 TABLET EVERY SIX HOUR AS NEEDED )
     Route: 048
  7. MUPIROCIN CALCIUM. [Suspect]
     Active Substance: MUPIROCIN CALCIUM
     Indication: PRODUCT USED FOR UNKNOWN INDICATION
     Dosage: 2 %, 3X/DAY (TID) (2% CREAM, UNSPECIFIED ROUTE OF ADMINISTRATION) A SMALL AMOUNT TO AFFECTED AREA T)
  8. PHENAZOPYRIDINE. [Suspect]
     Active Substance: PHENAZOPYRIDINE
     Indication: PRODUCT USED FOR UNKNOWN INDICATION
     Dosage: 200 MG, 3X/DAY (TID)
     Route: 048
  9. TRIAMCINOLONE ACETONIDE. [Suspect]
     Active Substance: TRIAMCINOLONE ACETONIDE
     Indication: PRODUCT USED FOR UNKNOWN INDICATION
     Dosage: 0.1 %, 3X/DAY (TID)
     Route: 061
  10. ZARONTIN [Suspect]
     Active Substance: ETHOSUXIMIDE
     Indication: PRODUCT USED FOR UNKNOWN INDICATION
     Dosage: 500 MG, 2X/DAY (BID)
     Route: 048
  11. TRAMADOL [Suspect]
     Active Substance: TRAMADOL
     Indication: PAIN
     Dosage: 50 MG, 6X/DAY 50 MG ONCE EVERY 4 HOURS, (AS NEEDED, 1-2 TABLETS EVERY FOUR HOURS
     Route: 048
  12. ONDANSETRON [Suspect]
     Active Substance: ONDANSETRON
     Indication: NAUSEA
     Dosage: 4 MG TABLET (EVERY 6 TO 8 HOURS AS NEEDED)
     Route: 048

REACTIONS (2)
  - Haematemesis [Unknown]
  - Abdominal pain [Unknown]
